FAERS Safety Report 4580712-X (Version None)
Quarter: 2005Q1

REPORT INFORMATION
  Report Type: 
  Country: None (occurrence: None)
  Receive Date: 20050214
  Receipt Date: 20040517
  Transmission Date: 20050727
  Serious: No
  Sender: FDA-Public Use
  Company Number: US-GLAXOSMITHKLINE-A0511111A

PATIENT
  Age: 59 Year
  Sex: Female

DRUGS (4)
  1. LAMICTAL [Suspect]
     Indication: BIPOLAR DISORDER
     Dosage: 250MG VARIABLE DOSE
     Route: 048
  2. SEROQUEL [Concomitant]
  3. KLONOPIN [Concomitant]
  4. NICORETTE [Concomitant]

REACTIONS (2)
  - APHTHOUS STOMATITIS [None]
  - TONGUE ULCERATION [None]
